FAERS Safety Report 6909759-2 (Version None)
Quarter: 2010Q3

REPORT INFORMATION
  Report Type: 
  Country: None (occurrence: None)
  Receive Date: 20100806
  Receipt Date: 20100728
  Transmission Date: 20110219
  Serious: Yes (Hospitalization)
  Sender: FDA-Public Use
  Company Number: US-BIOGENIDEC-2010BI015587

PATIENT
  Age: 38 Year
  Sex: Female
  Weight: 69 kg

DRUGS (4)
  1. AVONEX [Suspect]
     Indication: MULTIPLE SCLEROSIS
     Route: 030
     Dates: start: 20090522
  2. XANAX [Concomitant]
     Indication: GENERAL SYMPTOM
     Route: 048
  3. PRISTIQ [Concomitant]
     Indication: GENERAL SYMPTOM
  4. SOMA COMPOUND [Concomitant]
     Indication: BACK PAIN

REACTIONS (7)
  - ADVERSE DRUG REACTION [None]
  - ANAEMIA [None]
  - CERVICAL CYST [None]
  - PARAESTHESIA [None]
  - PROCEDURAL PAIN [None]
  - UTERINE CYST [None]
  - VAGINAL HAEMORRHAGE [None]
